FAERS Safety Report 9665310 (Version 1)
Quarter: 2013Q4

REPORT INFORMATION
  Report Type: Report from Study
  Country: US (occurrence: US)
  Receive Date: 20131101
  Receipt Date: 20131101
  Transmission Date: 20140711
  Serious: Yes (Other)
  Sender: FDA-Public Use
  Company Number: PHEH2013US022896

PATIENT
  Sex: Female

DRUGS (1)
  1. DIOVAN [Suspect]
     Dosage: 320 MG, UNK

REACTIONS (2)
  - Retinal vascular thrombosis [Unknown]
  - Eye disorder [Unknown]
